FAERS Safety Report 9713895 (Version 1)
Quarter: 2013Q4

REPORT INFORMATION
  Report Type: Spontaneous
  Country: CH (occurrence: CH)
  Receive Date: 20131126
  Receipt Date: 20131126
  Transmission Date: 20140711
  Serious: Yes (Other)
  Sender: FDA-Public Use
  Company Number: CH-GLAXOSMITHKLINE-B0947961A

PATIENT
  Age: 53 Year
  Sex: Female

DRUGS (5)
  1. VALTREX [Suspect]
     Indication: HERPES VIRUS INFECTION
     Dosage: 500MG TWICE PER DAY
     Route: 048
     Dates: start: 201310, end: 201310
  2. OMEPRAZOLE [Concomitant]
     Dosage: 20MG PER DAY
     Route: 048
  3. STILNOX [Concomitant]
     Dosage: 10MG PER DAY
     Route: 048
  4. TEMESTA [Concomitant]
     Dosage: .5ML PER DAY
     Route: 048
  5. SYMBICORT [Concomitant]
     Dosage: 2PUFF PER DAY
     Route: 055

REACTIONS (4)
  - Confusional state [Recovered/Resolved]
  - Vertigo [Unknown]
  - Nausea [Unknown]
  - Dysaesthesia [Unknown]
